FAERS Safety Report 4929342-8 (Version None)
Quarter: 2006Q1

REPORT INFORMATION
  Report Type: 
  Country: None (occurrence: None)
  Receive Date: 20060223
  Receipt Date: 20060203
  Transmission Date: 20060701
  Serious: Yes (Hospitalization, Other)
  Sender: FDA-Public Use
  Company Number: US200602001953

PATIENT
  Age: 28 Year
  Sex: Female

DRUGS (4)
  1. INSULIN, ANIMAL (INSULIN, ANIMAL) [Suspect]
     Indication: DIABETES MELLITUS
  2. INSULIN, ANIMAL (INSULIN, ANIMAL) [Suspect]
     Indication: DIABETES MELLITUS
  3. HUMAN INSULIN (RDNA ORIGIN) (HUMAN INSULIN (RDNA ORIGIN)) [Suspect]
     Indication: DIABETES MELLITUS
  4. AVALIDE [Concomitant]

REACTIONS (4)
  - CAESAREAN SECTION [None]
  - CATARACT [None]
  - CONVULSION [None]
  - DRUG EXPOSURE DURING PREGNANCY [None]
